FAERS Safety Report 8926600 (Version 2)
Quarter: 2013Q1

REPORT INFORMATION
  Report Type: Spontaneous
  Country: US (occurrence: US)
  Receive Date: 20121127
  Receipt Date: 20130305
  Transmission Date: 20140127
  Serious: Yes (Other)
  Sender: FDA-Public Use
  Company Number: PHHY2012US106374

PATIENT
  Age: 17 Year
  Sex: Male

DRUGS (3)
  1. SALBUTAMOL [Suspect]
     Indication: MYASTHENIA GRAVIS NEONATAL
     Dosage: 1 MG, TID
     Route: 048
  2. SALBUTAMOL [Suspect]
     Dosage: 4 MG, TID
     Route: 048
  3. SALBUTAMOL [Suspect]
     Dosage: 6 MG, TID
     Route: 048

REACTIONS (4)
  - Psychomotor hyperactivity [Recovered/Resolved]
  - Aggression [Recovered/Resolved]
  - Abnormal behaviour [Recovered/Resolved]
  - Agitation [Recovered/Resolved]
